FAERS Safety Report 7150787-2 (Version None)
Quarter: 2010Q4

REPORT INFORMATION
  Report Type: 
  Country: None (occurrence: None)
  Receive Date: 20101210
  Receipt Date: 20101129
  Transmission Date: 20110411
  Serious: Yes (Hospitalization)
  Sender: FDA-Public Use
  Company Number: DE-JNJFOC-20100907467

PATIENT
  Age: 62 Year
  Sex: Female
  Weight: 89 kg

DRUGS (9)
  1. USTEKINUMAB [Suspect]
     Indication: PSORIASIS
     Route: 058
  2. USTEKINUMAB [Suspect]
     Route: 058
  3. USTEKINUMAB [Suspect]
     Route: 058
  4. USTEKINUMAB [Suspect]
     Route: 058
  5. METHOTREXATE [Suspect]
     Indication: PSORIASIS
  6. BISOPROLOL [Concomitant]
     Route: 048
  7. RAMIPRIL [Concomitant]
     Route: 048
  8. TORASEMID [Concomitant]
     Route: 048
  9. SORMODREN [Concomitant]
     Route: 048

REACTIONS (1)
  - CEREBROVASCULAR ACCIDENT [None]
